FAERS Safety Report 10510375 (Version 2)
Quarter: 2014Q4

REPORT INFORMATION
  Report Type: Spontaneous
  Country: US (occurrence: None)
  Receive Date: 20141008
  Receipt Date: 20141020
  Transmission Date: 20150528
  Serious: Yes (Hospitalization)
  Sender: FDA-Public Use
  Company Number: 20140633

PATIENT
  Age: 36 Year
  Sex: Female

DRUGS (1)
  1. VENOFER [Suspect]
     Active Substance: IRON SUCROSE
     Indication: ANAEMIA
     Dosage: 200MG IN 100 ML NSS
     Route: 042
     Dates: start: 20140707, end: 20140707

REACTIONS (3)
  - Pyrexia [None]
  - Haemolysis [None]
  - Chromaturia [None]

NARRATIVE: CASE EVENT DATE: 2014
